FAERS Safety Report 24328872 (Version 4)
Quarter: 2025Q1

REPORT INFORMATION
  Report Type: Spontaneous
  Country: US (occurrence: US)
  Receive Date: 20240917
  Receipt Date: 20250306
  Transmission Date: 20250409
  Serious: Yes (Other)
  Sender: JOHNSON AND JOHNSON
  Company Number: US-JNJFOC-20240927879

PATIENT
  Sex: Female

DRUGS (6)
  1. SPRAVATO [Suspect]
     Active Substance: ESKETAMINE
     Indication: Depression
     Route: 045
  2. SPRAVATO [Suspect]
     Active Substance: ESKETAMINE
     Indication: Anxiety
     Route: 045
     Dates: start: 2024
  3. SPRAVATO [Suspect]
     Active Substance: ESKETAMINE
     Indication: Paranoia
  4. SPRAVATO [Suspect]
     Active Substance: ESKETAMINE
     Indication: Anger
  5. SPRAVATO [Suspect]
     Active Substance: ESKETAMINE
     Indication: Dissociation
  6. KETAMINE [Suspect]
     Active Substance: KETAMINE
     Indication: Product used for unknown indication
     Route: 065

REACTIONS (7)
  - Suicidal ideation [Unknown]
  - General physical health deterioration [Unknown]
  - Feeling of despair [Unknown]
  - General physical condition abnormal [Unknown]
  - Off label use [Unknown]
  - Drug ineffective [Unknown]
  - Fatigue [Unknown]
